FAERS Safety Report 15190406 (Version 2)
Quarter: 2018Q3

REPORT INFORMATION
  Report Type: Spontaneous
  Country: NL (occurrence: NL)
  Receive Date: 20180724
  Receipt Date: 20180806
  Transmission Date: 20181010
  Serious: Yes (Other)
  Sender: FDA-Public Use
  Company Number: NL-SA-2018SA197524

PATIENT
  Age: 33 Year
  Sex: Male

DRUGS (17)
  1. PARACETAMOL [Concomitant]
     Active Substance: ACETAMINOPHEN
     Dosage: 500 MG, TID
     Dates: start: 20180228
  2. TAVEGYL [Concomitant]
     Active Substance: CLEMASTINE FUMARATE
     Dosage: 1 MG, 2DD1
     Route: 048
     Dates: start: 20170220
  3. RIFINAH [Concomitant]
     Active Substance: ISONIAZID\RIFAMPIN
     Dosage: 300/150 MG, 1DD2
     Route: 048
     Dates: start: 20170221
  4. RIFAMPICINE [Concomitant]
     Active Substance: RIFAMPIN
     Dosage: 300/150 MG, 1DD2
     Dates: start: 20170116
  5. ACICLOVIR [Concomitant]
     Active Substance: ACYCLOVIR
     Dosage: 400 MG, 2DD1
     Route: 048
     Dates: start: 20170219
  6. PARACETAMOL [Concomitant]
     Active Substance: ACETAMINOPHEN
     Dosage: 500 MG, FOUR TIMES A DAY
     Dates: start: 20170220
  7. AMANTADINE. [Concomitant]
     Active Substance: AMANTADINE HYDROCHLORIDE
     Dosage: 100 MG, 2DD1
     Route: 048
  8. PREDNISOLONA [PREDNISOLONE] [Concomitant]
     Dosage: 10 MG, 1DD2
     Route: 048
     Dates: start: 20180710
  9. PANTOPRAZOL [PANTOPRAZOLE] [Concomitant]
     Dosage: 40 MG, 1DD1
     Route: 048
     Dates: start: 20180702
  10. OMEPRAZOLE. [Concomitant]
     Active Substance: OMEPRAZOLE
     Dosage: 40 MG, 1DD1
     Route: 048
     Dates: start: 20180228
  11. NATALIZUMAB [Concomitant]
     Active Substance: NATALIZUMAB
     Dosage: 20 MG/ML FL 15 ML, 1 TIME PER 4 WEEKS
     Route: 051
     Dates: start: 20151016
  12. LEMTRADA [Suspect]
     Active Substance: ALEMTUZUMAB
     Dosage: UNK
     Route: 041
     Dates: start: 20170220
  13. PREDNISOLONA [PREDNISOLONE] [Concomitant]
     Dosage: 60 MG, 1DD1
     Route: 048
     Dates: start: 20180702
  14. ACICLOVIR [Concomitant]
     Active Substance: ACYCLOVIR
     Dosage: 200 MG, 2DD2
     Route: 048
     Dates: start: 20170221
  15. ACICLOVIR [Concomitant]
     Active Substance: ACYCLOVIR
     Dosage: 800 MG, 1DD5
     Route: 048
     Dates: start: 20180228
  16. EPIPEN [Concomitant]
     Active Substance: EPINEPHRINE
     Dosage: 0.3 MG= 0.3 ML
     Route: 051
     Dates: start: 20180228
  17. OXYNORM [Concomitant]
     Active Substance: OXYCODONE HYDROCHLORIDE
     Dosage: 5 MG, 4 TIMES PER DAY
     Route: 048
     Dates: start: 20170220

REACTIONS (5)
  - C-reactive protein increased [Unknown]
  - Lymphocyte count decreased [Unknown]
  - Immune thrombocytopenic purpura [Not Recovered/Not Resolved]
  - Contusion [Not Recovered/Not Resolved]
  - Blood glucose increased [Unknown]

NARRATIVE: CASE EVENT DATE: 20180117
